FAERS Safety Report 11052471 (Version 2)
Quarter: 2015Q2

REPORT INFORMATION
  Report Type: Spontaneous
  Country: JP (occurrence: None)
  Receive Date: 20150417
  Receipt Date: 20150424
  Transmission Date: 20150821
  Serious: No
  Sender: FDA-Public Use
  Company Number: 2015FE01175

PATIENT
  Age: 52 Year
  Sex: Male

DRUGS (2)
  1. GONAX (DEGARELIX) POWDER AND SOLVENT FOR SOLUTION FOR INJECTION [Suspect]
     Active Substance: DEGARELIX
     Indication: PROSTATE CANCER
     Route: 058
     Dates: start: 201310, end: 201503
  2. PLATELET AGGREGATION INHIBITORS EXCL HEPARIN (PLATELET AGGREGATION INHIBITORS EXCL. HEPARIN) [Concomitant]

REACTIONS (3)
  - Wrong technique in drug usage process [None]
  - Haemorrhage subcutaneous [None]
  - Papule [None]

NARRATIVE: CASE EVENT DATE: 20150323
